FAERS Safety Report 9498885 (Version 6)
Quarter: 2014Q1

REPORT INFORMATION
  Report Type: Report from Study
  Country: FR (occurrence: CZ)
  Receive Date: 20130904
  Receipt Date: 20140321
  Transmission Date: 20141002
  Serious: Yes (Hospitalization)
  Sender: FDA-Public Use
  Company Number: CZ-FRI-1000048369

PATIENT
  Age: 50 Year
  Sex: Female
  Weight: 96 kg

DRUGS (22)
  1. SIOFOR [Concomitant]
     Dosage: 3000 MG
     Route: 048
     Dates: start: 2010, end: 20130805
  2. METOPROLOL TARTRATE [Concomitant]
     Dosage: 200 MG
     Route: 048
     Dates: start: 2005
  3. AMLODIPIN [Concomitant]
     Dosage: 10 MG
     Route: 048
     Dates: start: 2005
  4. EBRANTIL [Concomitant]
     Dosage: 120 MG
     Route: 048
     Dates: start: 2010, end: 20130717
  5. TRITAZIDE [Concomitant]
     Dosage: 5/25 MG
     Route: 048
     Dates: start: 2010, end: 20130811
  6. TELMISARTAN [Concomitant]
     Dosage: 80 MG
     Route: 048
     Dates: start: 2010
  7. ANOPYRIN [Concomitant]
     Dosage: 200 MG
     Route: 048
     Dates: start: 2007, end: 20130708
  8. ANOPYRIN [Concomitant]
     Dosage: 100 MG
     Route: 048
     Dates: start: 20130709
  9. HEPARINE [Concomitant]
     Dosage: 5000
     Route: 058
     Dates: start: 20130628, end: 20130721
  10. HUMALOG MIX [Concomitant]
     Route: 058
     Dates: start: 2010, end: 20130718
  11. DEGAN [Concomitant]
     Route: 030
     Dates: start: 20130710, end: 20130717
  12. TORECAN [Concomitant]
     Dosage: 6.5 MG
     Route: 030
     Dates: start: 20130803, end: 20130804
  13. TORECAN [Concomitant]
     Route: 048
     Dates: start: 20130725, end: 20130731
  14. TORECAN [Concomitant]
     Route: 042
     Dates: start: 20130709, end: 20130715
  15. FRAXIPARINE MULTI [Concomitant]
     Route: 058
     Dates: start: 20130722, end: 20130812
  16. LANSOPRAZOL [Concomitant]
     Dosage: 40 MG
     Route: 048
     Dates: start: 20130718, end: 20130806
  17. RANITAL [Concomitant]
     Dosage: 150 MG
     Route: 042
     Dates: start: 20130710, end: 20130717
  18. PROSULPIN [Concomitant]
     Indication: NAUSEA
     Dosage: 100 MG
     Route: 048
     Dates: start: 20130722, end: 20130810
  19. PROSULPIN [Concomitant]
     Indication: VOMITING
  20. ITOPRID [Concomitant]
     Dosage: 150 MG
     Route: 048
     Dates: start: 20130722, end: 20130725
  21. MCP HEXAL [Concomitant]
     Dosage: 20-30 MG
     Route: 048
     Dates: start: 20130804, end: 20130806
  22. LEVOMILNACIPRAN EXTENDED-RELEASE CAP [Suspect]
     Indication: CEREBROVASCULAR ACCIDENT
     Dosage: 2 DOSAGE FORMS
     Dates: start: 20130703, end: 20130730

REACTIONS (2)
  - Diabetes mellitus [Recovered/Resolved]
  - Dehydration [Recovered/Resolved]
